FAERS Safety Report 7802721 (Version 21)
Quarter: 2014Q3

REPORT INFORMATION
  Report Type: Spontaneous
  Country: US (occurrence: US)
  Receive Date: 20110207
  Receipt Date: 20140820
  Transmission Date: 20150326
  Serious: Yes (Hospitalization, Other)
  Sender: FDA-Public Use
  Company Number: PHEH2011US00445

PATIENT
  Sex: Female

DRUGS (21)
  1. ZOMETA [Suspect]
     Active Substance: ZOLEDRONIC ACID
     Indication: OSTEOPOROSIS
     Dosage: UNK UKN, UNK
     Dates: start: 200807, end: 200905
  2. PREDNISONE. [Concomitant]
     Active Substance: PREDNISONE
  3. CLARITIN [Concomitant]
     Active Substance: LORATADINE
  4. OXYCONTIN [Concomitant]
     Active Substance: OXYCODONE HYDROCHLORIDE
     Dosage: 10 MG, Q12H
  5. VIOXX [Concomitant]
     Active Substance: ROFECOXIB
     Dosage: 25 MG, QD
  6. COMPAZINE [Concomitant]
     Active Substance: PROCHLORPERAZINE MALEATE
     Dosage: 10 MG, Q6H PRN
  7. THALIDOMIDE [Concomitant]
     Active Substance: THALIDOMIDE
     Dosage: UNK UKN, UNK
  8. FENTANYL. [Concomitant]
     Active Substance: FENTANYL
  9. OSCAL [Concomitant]
     Active Substance: CALCIUM CARBONATE
  10. VITAMIN D [Concomitant]
     Active Substance: CHOLECALCIFEROL
  11. DEMEROL [Concomitant]
     Active Substance: MEPERIDINE HYDROCHLORIDE
  12. CHEMOTHERAPEUTICS [Concomitant]
     Active Substance: UNSPECIFIED INGREDIENT
     Dates: start: 2004
  13. COLACE [Concomitant]
     Active Substance: DOCUSATE SODIUM
     Dosage: 100 MG, QD
     Route: 048
  14. PROTONIX [Concomitant]
     Active Substance: PANTOPRAZOLE SODIUM
     Dosage: 40 MG, QD
     Route: 048
  15. ZOMETA [Suspect]
     Active Substance: ZOLEDRONIC ACID
     Indication: PLASMA CELL MYELOMA
     Dosage: 4 MG, QMO
     Route: 042
     Dates: start: 2004
  16. INDERAL [Concomitant]
     Active Substance: PROPRANOLOL HYDROCHLORIDE
     Dosage: 10 MG, TID
     Route: 048
  17. AMOXICILLIN. [Concomitant]
     Active Substance: AMOXICILLIN
  18. FERROUS SULFATE [Concomitant]
     Active Substance: FERROUS SULFATE\FERROUS SULFATE, DRIED
  19. VICODIN [Concomitant]
     Active Substance: ACETAMINOPHEN\HYDROCODONE BITARTRATE
  20. XANAX [Concomitant]
     Active Substance: ALPRAZOLAM
  21. HEPARIN [Concomitant]
     Active Substance: HEPARIN SODIUM

REACTIONS (112)
  - Burning sensation [Unknown]
  - Soft tissue inflammation [Unknown]
  - Jaw fracture [Unknown]
  - Hyperkeratosis [Unknown]
  - Mass [Unknown]
  - Pulmonary mass [Unknown]
  - Oral pain [Unknown]
  - Pain [Unknown]
  - Paraesthesia [Unknown]
  - Gastrooesophageal reflux disease [Unknown]
  - Cardiac murmur [Unknown]
  - Cardiovascular disorder [Unknown]
  - Paraproteinaemia [Unknown]
  - Intervertebral disc protrusion [Unknown]
  - Cholelithiasis [Unknown]
  - Polyneuropathy [Unknown]
  - Pulpitis dental [Unknown]
  - Device failure [Unknown]
  - Hypertension [Unknown]
  - Neuralgia [Unknown]
  - Anxiety [Unknown]
  - Pancreatitis [Unknown]
  - Rhinitis allergic [Unknown]
  - Neuropathy peripheral [Unknown]
  - Joint stiffness [Unknown]
  - Muscle spasms [Unknown]
  - Spinal osteoarthritis [Unknown]
  - Facet joint syndrome [Unknown]
  - Deformity [Unknown]
  - Infection [Unknown]
  - Injury [Unknown]
  - Osteomyelitis [Unknown]
  - Oedema [Unknown]
  - Gastritis [Unknown]
  - Migraine [Unknown]
  - Sinus disorder [Unknown]
  - Ear infection [Unknown]
  - Pleural effusion [Unknown]
  - Dyskinesia [Unknown]
  - Cyst [Unknown]
  - Pain in jaw [Unknown]
  - Arthralgia [Unknown]
  - Rheumatoid arthritis [Unknown]
  - Bone erosion [Unknown]
  - Osteolysis [Unknown]
  - Gastric ulcer [Unknown]
  - Sinusitis [Unknown]
  - Rash [Unknown]
  - Hyperparathyroidism [Unknown]
  - Primary sequestrum [Unknown]
  - Mouth ulceration [Unknown]
  - Atrophy [Unknown]
  - Bone lesion [Unknown]
  - Fatigue [Unknown]
  - Hypophosphataemia [Unknown]
  - Exposed bone in jaw [Unknown]
  - Back pain [Unknown]
  - Abdominal pain [Unknown]
  - Tobacco abuse [Unknown]
  - Mitral valve prolapse [Unknown]
  - Bone pain [Unknown]
  - Acidosis [Unknown]
  - Gait disturbance [Unknown]
  - Dizziness [Unknown]
  - Joint swelling [Unknown]
  - Peripheral swelling [Unknown]
  - Pruritus [Unknown]
  - Fibromyalgia [Unknown]
  - Mucosal ulceration [Unknown]
  - Nausea [Unknown]
  - Gingival disorder [Unknown]
  - Hiatus hernia [Unknown]
  - Diverticulum [Unknown]
  - Pathological fracture [Unknown]
  - Pain in extremity [Unknown]
  - Osteopenia [Unknown]
  - Pollakiuria [Unknown]
  - Abdominal tenderness [Unknown]
  - Cachexia [Unknown]
  - Hypoaesthesia [Unknown]
  - Joint contracture [Unknown]
  - Hypoalbuminaemia [Unknown]
  - Rheumatic fever [Unknown]
  - Lymphadenopathy [Unknown]
  - Diarrhoea [Unknown]
  - Tympanic membrane perforation [Unknown]
  - Bone disorder [Unknown]
  - Oedema mouth [Unknown]
  - Impaired healing [Unknown]
  - Atelectasis [Unknown]
  - Gingival swelling [Unknown]
  - Osteoporosis [Unknown]
  - Cardiomegaly [Unknown]
  - Iron deficiency anaemia [Unknown]
  - Breast mass [Unknown]
  - Bone metabolism disorder [Unknown]
  - Tibia fracture [Unknown]
  - Ingrowing nail [Unknown]
  - Arthritis [Unknown]
  - Headache [Unknown]
  - Muscular weakness [Unknown]
  - Osteoarthritis [Unknown]
  - Dental caries [Unknown]
  - Tooth fracture [Unknown]
  - Vomiting [Unknown]
  - Hypokalaemia [Unknown]
  - Osteonecrosis of jaw [Unknown]
  - Physical disability [Unknown]
  - Toothache [Unknown]
  - Endometriosis [Unknown]
  - Arrhythmia [Unknown]
  - Intervertebral disc degeneration [Unknown]

NARRATIVE: CASE EVENT DATE: 2008
